FAERS Safety Report 18447725 (Version 1)
Quarter: 2020Q4

REPORT INFORMATION
  Report Type: Report from Study
  Country: PA (occurrence: PA)
  Receive Date: 20201101
  Receipt Date: 20201101
  Transmission Date: 20210114
  Serious: Yes (Life-Threatening, Other)
  Sender: FDA-Public Use
  Company Number: NVSC2019PA003106

PATIENT
  Sex: Male

DRUGS (1)
  1. GILENYA [Suspect]
     Active Substance: FINGOLIMOD HYDROCHLORIDE
     Indication: MULTIPLE SCLEROSIS
     Dosage: 0.5 MG, QD
     Route: 048
     Dates: start: 20190927

REACTIONS (14)
  - Chest discomfort [Recovered/Resolved]
  - Dyspnoea [Unknown]
  - Confusional state [Recovered/Resolved]
  - Disturbance in attention [Unknown]
  - Sensitivity to weather change [Unknown]
  - Heart rate increased [Recovering/Resolving]
  - Near death experience [Recovered/Resolved]
  - Fear [Recovered/Resolved]
  - Hypertension [Recovered/Resolved]
  - Overdose [Recovered/Resolved]
  - Headache [Unknown]
  - Chest pain [Recovered/Resolved]
  - Headache [Recovered/Resolved]
  - Dizziness [Recovered/Resolved]
